FAERS Safety Report 10682828 (Version 1)
Quarter: 2014Q4

REPORT INFORMATION
  Report Type: Spontaneous
  Country: US (occurrence: US)
  Receive Date: 20141230
  Receipt Date: 20141230
  Transmission Date: 20150529
  Serious: Yes (Hospitalization)
  Sender: FDA-Public Use
  Company Number: US-009507513-1412USA012851

PATIENT
  Age: 57 Year
  Sex: Male

DRUGS (1)
  1. EMEND [Suspect]
     Active Substance: APREPITANT
     Route: 042

REACTIONS (1)
  - Activities of daily living impaired [Unknown]

NARRATIVE: CASE EVENT DATE: 20141117
